FAERS Safety Report 25922564 (Version 1)
Quarter: 2025Q4

REPORT INFORMATION
  Report Type: Spontaneous
  Country: US (occurrence: US)
  Receive Date: 20251015
  Receipt Date: 20251015
  Transmission Date: 20260118
  Serious: No
  Sender: APOTEX
  Company Number: US-APOTEX-2025AP030994

PATIENT
  Sex: Female

DRUGS (1)
  1. MINOXIDIL [Suspect]
     Active Substance: MINOXIDIL
     Indication: Alopecia
     Dosage: UNK
     Route: 065

REACTIONS (2)
  - Trichorrhexis [Unknown]
  - Hair texture abnormal [Unknown]
